FAERS Safety Report 10386181 (Version 1)
Quarter: 2014Q1

REPORT INFORMATION
  Report Type: Spontaneous
  Country: US (occurrence: None)
  Receive Date: 20140306
  Receipt Date: 20140306
  Transmission Date: 20141002
  Serious: Yes (Other)
  Sender: FDA-Public Use
  Company Number: 163-21880-13083147

PATIENT
  Age: 61 Year
  Sex: Male
  Weight: 134.08 kg

DRUGS (8)
  1. REVLIMID [Suspect]
     Indication: PLASMA CELL MYELOMA
     Route: 048
     Dates: start: 201107
  2. MULTIVITAMINS [Concomitant]
  3. ACYCLOVIR (ACICLOVIR) (ACICLOVIR) [Concomitant]
  4. LABETALOL HCL (LABETALOL HYDROCHLORIDE) [Concomitant]
  5. LOPRESSOR (METOPROLOL TARTRATE) [Concomitant]
  6. PANTOPRAZOLE SODIUM [Concomitant]
  7. PRANDIN (DEFLAZACORT) [Concomitant]
  8. PRAVASTATIN SODIUM [Concomitant]

REACTIONS (2)
  - Thrombocytopenia [None]
  - Pneumonia [None]
